FAERS Safety Report 19821407 (Version 1)
Quarter: 2021Q3

REPORT INFORMATION
  Report Type: Spontaneous
  Country: US (occurrence: US)
  Receive Date: 20210913
  Receipt Date: 20210913
  Transmission Date: 20211014
  Serious: No
  Sender: FDA-Public Use
  Company Number: US-GLENMARK PHARMACEUTICALS-2020GMK049589

PATIENT

DRUGS (2)
  1. DROSPIRENONE/ETHINYL ESTRADIOL [Suspect]
     Active Substance: DROSPIRENONE\ETHINYL ESTRADIOL
     Indication: HEAVY MENSTRUAL BLEEDING
     Dosage: UNK
     Route: 048
     Dates: start: 202006
  2. DROSPIRENONE/ETHINYL ESTRADIOL [Suspect]
     Active Substance: DROSPIRENONE\ETHINYL ESTRADIOL
     Indication: DYSMENORRHOEA

REACTIONS (2)
  - Vaginal haemorrhage [Not Recovered/Not Resolved]
  - Product use in unapproved indication [Unknown]

NARRATIVE: CASE EVENT DATE: 2020
